FAERS Safety Report 7375886-1 (Version None)
Quarter: 2011Q1

REPORT INFORMATION
  Report Type: 
  Country: None (occurrence: None)
  Receive Date: 20110325
  Receipt Date: 20090420
  Transmission Date: 20110831
  Serious: Yes (Death, Hospitalization)
  Sender: FDA-Public Use
  Company Number: B0571328A

PATIENT
  Sex: Female
  Weight: 64 kg

DRUGS (1)
  1. PAZOPANIB [Suspect]
     Indication: SARCOMA
     Dates: start: 20090410

REACTIONS (2)
  - THROMBOSIS [None]
  - JUGULAR VEIN THROMBOSIS [None]
